FAERS Safety Report 18315179 (Version 1)
Quarter: 2020Q3

REPORT INFORMATION
  Report Type: Other
  Country: US (occurrence: US)
  Receive Date: 20200925
  Receipt Date: 20200925
  Transmission Date: 20201103
  Serious: Yes (Death)
  Sender: FDA-Public Use
  Company Number: US-VERASTEM-2019-00225

PATIENT

DRUGS (2)
  1. COPIKTRA [Suspect]
     Active Substance: DUVELISIB
     Indication: CHRONIC LYMPHOCYTIC LEUKAEMIA
     Dosage: 25 MG, BID
     Route: 048
     Dates: start: 20190928
  2. COPIKTRA [Suspect]
     Active Substance: DUVELISIB
     Dosage: 25 MILLIGRAM, QD
     Route: 048
     Dates: start: 20191020

REACTIONS (4)
  - Headache [Not Recovered/Not Resolved]
  - Death [Fatal]
  - Herpes zoster [Unknown]
  - Trigeminal neuralgia [Unknown]

NARRATIVE: CASE EVENT DATE: 201910
